FAERS Safety Report 8495112-X (Version None)
Quarter: 2012Q3

REPORT INFORMATION
  Report Type: 
  Country: None (occurrence: None)
  Receive Date: 20120709
  Receipt Date: 20120628
  Transmission Date: 20120928
  Serious: Yes (Hospitalization)
  Sender: FDA-Public Use
  Company Number: US-JNJFOC-20120700496

PATIENT
  Sex: Female
  Weight: 65.77 kg

DRUGS (6)
  1. TRICOR [Concomitant]
     Indication: BLOOD CHOLESTEROL INCREASED
     Route: 048
  2. BENICAR [Concomitant]
     Indication: BLOOD PRESSURE
     Route: 048
  3. DURAGESIC-100 [Suspect]
     Route: 062
     Dates: start: 20120622
  4. DURAGESIC-100 [Suspect]
     Indication: FIBROMYALGIA
     Route: 062
     Dates: start: 20040101
  5. DURAGESIC-100 [Suspect]
     Route: 062
     Dates: end: 20120622
  6. ZETIA [Concomitant]
     Indication: BLOOD CHOLESTEROL INCREASED
     Route: 048

REACTIONS (9)
  - BLISTER [None]
  - SKIN DISORDER [None]
  - DRUG INEFFECTIVE [None]
  - ATRIAL FIBRILLATION [None]
  - PRODUCT QUALITY ISSUE [None]
  - DRUG DOSE OMISSION [None]
  - CARDIAC DISORDER [None]
  - WRONG TECHNIQUE IN DRUG USAGE PROCESS [None]
  - MYOCARDIAL INFARCTION [None]
